FAERS Safety Report 6898316-2 (Version None)
Quarter: 2010Q3

REPORT INFORMATION
  Report Type: 
  Country: None (occurrence: None)
  Receive Date: 20100802
  Receipt Date: 20071001
  Transmission Date: 20110219
  Serious: Yes (Other)
  Sender: FDA-Public Use
  Company Number: US-PFIZER INC-2007063073

PATIENT
  Age: 43 Year
  Sex: Female
  Weight: 54.4 kg

DRUGS (2)
  1. LYRICA [Suspect]
     Indication: NEURALGIA
     Dates: start: 20070717, end: 20070725
  2. PROPRANOLOL [Concomitant]

REACTIONS (4)
  - ANGIOEDEMA [None]
  - BLISTER [None]
  - MOUTH ULCERATION [None]
  - MUCOSAL INFLAMMATION [None]
